FAERS Safety Report 5451995-9 (Version None)
Quarter: 2007Q3

REPORT INFORMATION
  Report Type: 
  Country: None (occurrence: None)
  Receive Date: 20070912
  Receipt Date: 20070904
  Transmission Date: 20080115
  Serious: Yes (Hospitalization)
  Sender: FDA-Public Use
  Company Number: 2007JP004132

PATIENT
  Age: 83 Year
  Sex: Female

DRUGS (3)
  1. VESICARE [Suspect]
     Indication: HYPERTONIC BLADDER
     Dosage: 5 MG, ORAL
     Route: 048
     Dates: start: 20070331
  2. ARICEPT (DONEPEZIL HYDROCHLORIDE) PER ORAL NOS [Concomitant]
  3. RIZE (CLOTIAZEPAM) PER ORAL NOS [Concomitant]

REACTIONS (1)
  - ATRIOVENTRICULAR BLOCK COMPLETE [None]
